FAERS Safety Report 5766998-4 (Version None)
Quarter: 2008Q2

REPORT INFORMATION
  Report Type: 
  Country: None (occurrence: None)
  Receive Date: 20080612
  Receipt Date: 20080530
  Transmission Date: 20081010
  Serious: Yes (Hospitalization)
  Sender: FDA-Public Use
  Company Number: CH-AVENTIS-200815094GDDC

PATIENT
  Age: 69 Year
  Sex: Male

DRUGS (4)
  1. APIDRA [Suspect]
     Route: 058
     Dates: start: 20080422, end: 20080422
  2. OPTICLIK GREY [Suspect]
  3. LANTUS [Suspect]
     Route: 058
     Dates: end: 20080422
  4. OPTICLIK GREY [Suspect]

REACTIONS (4)
  - HYPOGLYCAEMIA [None]
  - MEDICATION ERROR [None]
  - PHARMACEUTICAL PRODUCT COMPLAINT [None]
  - WRONG DRUG ADMINISTERED [None]
